FAERS Safety Report 12592574 (Version 1)
Quarter: 2016Q3

REPORT INFORMATION
  Report Type: Report from Study
  Country: US (occurrence: US)
  Receive Date: 20160726
  Receipt Date: 20160726
  Transmission Date: 20161109
  Serious: Yes (Hospitalization)
  Sender: FDA-Public Use
  Company Number: US-JNJFOC-20160718908

PATIENT
  Sex: Male

DRUGS (5)
  1. TERAZOSIN [Concomitant]
     Active Substance: TERAZOSIN\TERAZOSIN HYDROCHLORIDE
  2. WARFARIN [Concomitant]
     Active Substance: WARFARIN
  3. ENALAPRIL [Concomitant]
     Active Substance: ENALAPRIL
  4. IMBRUVICA [Suspect]
     Active Substance: IBRUTINIB
     Indication: CHRONIC LYMPHOCYTIC LEUKAEMIA
     Route: 048
     Dates: start: 20150923
  5. INDAPAMIDE. [Concomitant]
     Active Substance: INDAPAMIDE

REACTIONS (2)
  - Cerebrovascular accident [Unknown]
  - Haemobilia [Unknown]
